FAERS Safety Report 6702628-2 (Version None)
Quarter: 2010Q2

REPORT INFORMATION
  Report Type: 
  Country: None (occurrence: None)
  Receive Date: 20100429
  Receipt Date: 20100420
  Transmission Date: 20101027
  Serious: Yes (Hospitalization, Other)
  Sender: FDA-Public Use
  Company Number: US-AMGEN-US311929

PATIENT
  Sex: Female

DRUGS (2)
  1. SENSIPAR [Suspect]
     Indication: PARATHYROID TUMOUR MALIGNANT
     Dates: start: 20070101
  2. SYNTHROID [Concomitant]

REACTIONS (9)
  - BLOOD CALCIUM INCREASED [None]
  - BONE DENSITY DECREASED [None]
  - DIZZINESS [None]
  - FEELING ABNORMAL [None]
  - MALIGNANT NEOPLASM PROGRESSION [None]
  - NAUSEA [None]
  - PALPITATIONS [None]
  - RENAL FAILURE [None]
  - VOMITING [None]
